FAERS Safety Report 15358941 (Version 2)
Quarter: 2018Q4

REPORT INFORMATION
  Report Type: Spontaneous
  Country: US (occurrence: US)
  Receive Date: 20180906
  Receipt Date: 20181205
  Transmission Date: 20190204
  Serious: No
  Sender: FDA-Public Use
  Company Number: US-PTC THERAPEUTICS, INC.-US-2018PTC000717

PATIENT

DRUGS (2)
  1. EMFLAZA [Suspect]
     Active Substance: DEFLAZACORT
     Indication: DUCHENNE MUSCULAR DYSTROPHY
     Dosage: 27 MG, QD
     Route: 048
     Dates: start: 20171103
  2. EMFLAZA [Suspect]
     Active Substance: DEFLAZACORT
     Dosage: 27 MG, QD
     Route: 048
     Dates: start: 20170627

REACTIONS (2)
  - Mood altered [Unknown]
  - Pollakiuria [Not Recovered/Not Resolved]

NARRATIVE: CASE EVENT DATE: 20180903
